FAERS Safety Report 9003777 (Version 1)
Quarter: 2013Q1

REPORT INFORMATION
  Report Type: Spontaneous
  Country: US (occurrence: US)
  Receive Date: 20130108
  Receipt Date: 20130108
  Transmission Date: 20140127
  Serious: No
  Sender: FDA-Public Use
  Company Number: US-GLAXOSMITHKLINE-A0977521A

PATIENT
  Sex: Male

DRUGS (1)
  1. LOVAZA [Suspect]
     Indication: PROPHYLAXIS
     Dosage: 1G PER DAY
     Route: 048

REACTIONS (4)
  - Dyspepsia [Recovered/Resolved]
  - Ill-defined disorder [Unknown]
  - Dyspepsia [Unknown]
  - Anxiety [Unknown]
